FAERS Safety Report 19867348 (Version 2)
Quarter: 2022Q3

REPORT INFORMATION
  Report Type: Spontaneous
  Country: ES (occurrence: ES)
  Receive Date: 20210921
  Receipt Date: 20220923
  Transmission Date: 20221027
  Serious: Yes (Life-Threatening, Hospitalization, Other)
  Sender: FDA-Public Use
  Company Number: None

PATIENT
  Age: 57 Year
  Sex: Male

DRUGS (1)
  1. YESCARTA [Suspect]
     Active Substance: AXICABTAGENE CILOLEUCEL
     Indication: Product used for unknown indication
     Dosage: 1 DOSAGE FORM; 68 ML
     Route: 042
     Dates: start: 20210427, end: 20210427

REACTIONS (4)
  - Cognitive linguistic deficit [Recovering/Resolving]
  - Immune effector cell-associated neurotoxicity syndrome [Recovering/Resolving]
  - Stupor [Recovering/Resolving]
  - Agraphia [Recovering/Resolving]

NARRATIVE: CASE EVENT DATE: 20210502
